FAERS Safety Report 5153979-7 (Version None)
Quarter: 2006Q4

REPORT INFORMATION
  Report Type: 
  Country: None (occurrence: None)
  Receive Date: 20061120
  Receipt Date: 20061018
  Transmission Date: 20070319
  Serious: Yes (Other)
  Sender: FDA-Public Use
  Company Number: US-GLAXOSMITHKLINE-A0624041A

PATIENT
  Age: 59 Year
  Sex: Female
  Weight: 79.5 kg

DRUGS (5)
  1. AVANDAMET [Suspect]
     Route: 048
     Dates: start: 20060626, end: 20060702
  2. LIPITOR [Concomitant]
  3. LISINOPRIL [Concomitant]
  4. HUMULIN INSULIN [Concomitant]
     Route: 058
  5. EFFEXOR [Concomitant]

REACTIONS (4)
  - ARTHRALGIA [None]
  - JOINT SWELLING [None]
  - MACULAR OEDEMA [None]
  - WEIGHT INCREASED [None]
